FAERS Safety Report 10222252 (Version 2)
Quarter: 2015Q4

REPORT INFORMATION
  Report Type: Spontaneous
  Country: FR (occurrence: FR)
  Receive Date: 20140606
  Receipt Date: 20151127
  Transmission Date: 20160304
  Serious: No
  Sender: FDA-Public Use
  Company Number: FR-GLAXOSMITHKLINE-B0998544A

PATIENT
  Age: 43 Year
  Sex: Male

DRUGS (16)
  1. OXALIPLATINE [Suspect]
     Active Substance: OXALIPLATIN
     Route: 042
     Dates: start: 201403
  2. IMODIUM [Concomitant]
     Active Substance: LOPERAMIDE HYDROCHLORIDE
     Route: 048
  3. OXYNORM [Concomitant]
     Active Substance: OXYCODONE HYDROCHLORIDE
     Route: 048
  4. XANAX [Concomitant]
     Active Substance: ALPRAZOLAM
     Route: 048
  5. EMEND [Suspect]
     Active Substance: APREPITANT
     Indication: PREMEDICATION
     Route: 048
     Dates: start: 20140401, end: 20140401
  6. FOLIC ACID. [Suspect]
     Active Substance: FOLIC ACID
     Route: 042
     Dates: start: 201403
  7. PRIMPERAN [Suspect]
     Active Substance: METOCLOPRAMIDE HYDROCHLORIDE
     Indication: PREMEDICATION
     Route: 048
     Dates: start: 20140401, end: 20140401
  8. PARACETAMOL [Concomitant]
     Active Substance: ACETAMINOPHEN
     Route: 065
  9. STILNOX [Concomitant]
     Active Substance: ZOLPIDEM TARTRATE
     Route: 048
  10. POLARAMINE [Suspect]
     Active Substance: DEXCHLORPHENIRAMINE MALEATE
     Indication: HYPERSENSITIVITY
     Route: 042
     Dates: start: 20140401, end: 20140401
  11. SMECTA [Concomitant]
     Active Substance: MONTMORILLONITE
     Route: 048
  12. ZOPHREN [Suspect]
     Active Substance: ONDANSETRON
     Indication: PREMEDICATION
     Route: 065
     Dates: start: 20140401, end: 20140401
  13. FLUOROURACIL. [Suspect]
     Active Substance: FLUOROURACIL
     Route: 042
     Dates: start: 201403
  14. LIDOCAIN [Concomitant]
     Active Substance: LIDOCAINE
     Route: 061
  15. ERBITUX [Suspect]
     Active Substance: CETUXIMAB
     Route: 042
     Dates: start: 201403
  16. TRANXENE T-TAB [Suspect]
     Active Substance: CLORAZEPATE DIPOTASSIUM
     Indication: PREMEDICATION
     Route: 065
     Dates: start: 20140401, end: 20140401

REACTIONS (6)
  - Chills [Recovered/Resolved]
  - Blood bilirubin increased [Recovering/Resolving]
  - Serum ferritin increased [Recovering/Resolving]
  - Jaundice [Recovered/Resolved]
  - Thrombocytopenia [Recovered/Resolved]
  - Malaise [Unknown]

NARRATIVE: CASE EVENT DATE: 20140401
